FAERS Safety Report 9234351 (Version 2)
Quarter: 2013Q3

REPORT INFORMATION
  Report Type: Spontaneous
  Country: US (occurrence: US)
  Receive Date: 20130416
  Receipt Date: 20130912
  Transmission Date: 20140515
  Serious: Yes (Death, Disabling, Other)
  Sender: FDA-Public Use
  Company Number: US-009507513-1304USA004654

PATIENT
  Sex: Male
  Weight: 86.17 kg

DRUGS (1)
  1. JANUVIA [Suspect]
     Dosage: 100 MG, UNK
     Route: 048
     Dates: start: 20080519, end: 20100119

REACTIONS (13)
  - Adenocarcinoma pancreas [Unknown]
  - Death [Fatal]
  - Deformity [Not Recovered/Not Resolved]
  - Metastases to liver [Unknown]
  - Colon cancer [Unknown]
  - Colon cancer metastatic [Unknown]
  - Appendix cancer [Unknown]
  - Barrett^s oesophagus [Unknown]
  - Type 2 diabetes mellitus [Unknown]
  - Dyslipidaemia [Unknown]
  - Hypertension [Unknown]
  - Wisdom teeth removal [Unknown]
  - Gastric haemorrhage [Unknown]
